FAERS Safety Report 25702289 (Version 2)
Quarter: 2025Q3

REPORT INFORMATION
  Report Type: Spontaneous
  Country: EU (occurrence: EU)
  Receive Date: 20250819
  Receipt Date: 20250828
  Transmission Date: 20251021
  Serious: Yes (Other)
  Sender: MYLAN
  Company Number: EU-002147023-NVSC2025PT113337

PATIENT
  Age: 66 Year
  Sex: Male

DRUGS (6)
  1. ATORVASTATIN [Suspect]
     Active Substance: ATORVASTATIN
     Indication: Dyslipidaemia
  2. ATORVASTATIN [Suspect]
     Active Substance: ATORVASTATIN
     Dosage: 40 MILLIGRAM, QD
     Dates: start: 20250725
  3. ASCIMINIB [Suspect]
     Active Substance: ASCIMINIB
     Indication: Acute lymphocytic leukaemia
     Dosage: 40 MILLIGRAM, BID
     Dates: start: 20250612
  4. ASCIMINIB [Suspect]
     Active Substance: ASCIMINIB
     Dosage: 40 MILLIGRAM, BID
  5. ASCIMINIB [Suspect]
     Active Substance: ASCIMINIB
     Dosage: 40 MILLIGRAM, BID
  6. ASCIMINIB [Suspect]
     Active Substance: ASCIMINIB
     Dosage: 80 MILLIGRAM, BID

REACTIONS (6)
  - Hepatotoxicity [Recovering/Resolving]
  - Blood alkaline phosphatase abnormal [Recovering/Resolving]
  - Gamma-glutamyltransferase abnormal [Recovering/Resolving]
  - Aspartate aminotransferase increased [Recovering/Resolving]
  - Alanine aminotransferase abnormal [Recovering/Resolving]
  - Off label use [Unknown]
